FAERS Safety Report 17682030 (Version 2)
Quarter: 2025Q2

REPORT INFORMATION
  Report Type: Spontaneous
  Country: CH (occurrence: DE)
  Receive Date: 20200418
  Receipt Date: 20250626
  Transmission Date: 20250716
  Serious: Yes (Hospitalization, Other)
  Sender: AUROBINDO
  Company Number: DE-EMA-20110510-PDEVHUMANWT-101515756

PATIENT
  Age: 74 Year
  Sex: Female
  Weight: 50.8 kg

DRUGS (7)
  1. BUPIVACAINE [Suspect]
     Active Substance: BUPIVACAINE
     Indication: Analgesic therapy
     Dosage: 356 MILLIGRAM, ONCE A DAY
     Route: 058
  2. CLONIDINE [Suspect]
     Active Substance: CLONIDINE
     Indication: Analgesic therapy
     Dosage: 78.54 MICROGRAM, ONCE A DAY
     Route: 058
  3. CLONIDINE [Suspect]
     Active Substance: CLONIDINE
     Indication: Metastases to spine
     Route: 008
  4. MORPHINE [Suspect]
     Active Substance: MORPHINE
     Indication: Analgesic therapy
     Dosage: 2.62 MILLIGRAM, ONCE A DAY
     Route: 058
  5. MORPHINE [Suspect]
     Active Substance: MORPHINE
     Indication: Metastases to spine
     Route: 008
  6. EPINEPHRINE [Concomitant]
     Active Substance: EPINEPHRINE
     Indication: Product used for unknown indication
     Route: 065
  7. LIDOCAINE [Concomitant]
     Active Substance: LIDOCAINE
     Indication: Product used for unknown indication
     Route: 065

REACTIONS (2)
  - Soft tissue necrosis [Not Recovered/Not Resolved]
  - Ulcer [Not Recovered/Not Resolved]
